FAERS Safety Report 7202501-X (Version None)
Quarter: 2010Q4

REPORT INFORMATION
  Report Type: 
  Country: None (occurrence: None)
  Receive Date: 20101229
  Receipt Date: 20101223
  Transmission Date: 20110411
  Serious: Yes (Life-Threatening)
  Sender: FDA-Public Use
  Company Number: PHHY2010CH87708

PATIENT
  Age: 32 Year
  Sex: Male
  Weight: 73 kg

DRUGS (4)
  1. CLOPIN ECO [Suspect]
     Indication: SCHIZOPHRENIA
     Dosage: 200 MG, QD
     Route: 048
     Dates: start: 20101117, end: 20101216
  2. SEROQUEL [Concomitant]
     Dosage: 100 MG, BID
     Route: 048
     Dates: start: 20101216
  3. AMITRIPTYLINE HCL [Concomitant]
     Dosage: 150 MG, QD
     Route: 048
     Dates: start: 20101216
  4. RISPERDAL [Concomitant]
     Dosage: UNK
     Route: 048
     Dates: start: 20101101, end: 20101101

REACTIONS (5)
  - APHASIA [None]
  - CEREBRAL INFARCTION [None]
  - HEMIPLEGIA [None]
  - INTRACARDIAC THROMBUS [None]
  - MYOCARDITIS [None]
